FAERS Safety Report 7955811-2 (Version None)
Quarter: 2011Q4

REPORT INFORMATION
  Report Type: 
  Country: None (occurrence: None)
  Receive Date: 20111205
  Receipt Date: 20111122
  Transmission Date: 20120403
  Serious: Yes (Other)
  Sender: FDA-Public Use
  Company Number: DE-BIOGENIDEC-2011BI019961

PATIENT
  Age: 27 Year
  Sex: Female
  Weight: 71 kg

DRUGS (1)
  1. AVONEX [Suspect]
     Indication: MULTIPLE SCLEROSIS
     Route: 030
     Dates: start: 20090123, end: 20110201

REACTIONS (3)
  - CEPHALO-PELVIC DISPROPORTION [None]
  - PRE-ECLAMPSIA [None]
  - GESTATIONAL DIABETES [None]
